FAERS Safety Report 15858991 (Version 2)
Quarter: 2019Q1

REPORT INFORMATION
  Report Type: Spontaneous
  Country: JP (occurrence: JP)
  Receive Date: 20190123
  Receipt Date: 20190201
  Transmission Date: 20190417
  Serious: Yes (Hospitalization, Other)
  Sender: FDA-Public Use
  Company Number: JP-ASTRAZENECA-2019SE08706

PATIENT
  Age: 63 Year
  Sex: Female

DRUGS (5)
  1. LYNPARZA [Suspect]
     Active Substance: OLAPARIB
     Indication: OVARIAN CANCER
     Route: 048
     Dates: start: 20181029, end: 20190115
  2. EC-DOPARL [Concomitant]
     Active Substance: BENSERAZIDE HYDROCHLORIDE\LEVODOPA
     Dosage: DOSE UNKNOWN
     Route: 065
  3. DOPAMIN [Concomitant]
     Dosage: DOSE UNKNOWN
     Route: 065
  4. COMTAN [Concomitant]
     Active Substance: ENTACAPONE
     Dosage: DOSE UNKNOWN
     Route: 065
  5. NEUPRO [Concomitant]
     Active Substance: ROTIGOTINE
     Dosage: DOSE UNKNOWN
     Route: 065

REACTIONS (3)
  - Pubis fracture [Unknown]
  - Parkinson^s disease [Recovering/Resolving]
  - Femur fracture [Unknown]

NARRATIVE: CASE EVENT DATE: 20181126
